FAERS Safety Report 5338771-2 (Version None)
Quarter: 2007Q2

REPORT INFORMATION
  Report Type: 
  Country: None (occurrence: None)
  Receive Date: 20070328
  Receipt Date: 20060223
  Transmission Date: 20071010
  Serious: Yes (Other)
  Sender: FDA-Public Use
  Company Number: K200600272

PATIENT
  Age: 58 Year
  Sex: Male

DRUGS (4)
  1. ALTACE [Suspect]
     Indication: HYPERTENSION
     Dosage: 2.5 MG, QD, ORAL
     Route: 048
     Dates: start: 20010101, end: 20060222
  2. ADVIL [Suspect]
     Dosage: PRN, ORAL
     Route: 048
     Dates: start: 20060221, end: 20060221
  3. METOPROLOL TARTRATE [Concomitant]
  4. CRESTOR /NET/ (ROSUVASTATIN CALCIUM) [Concomitant]

REACTIONS (1)
  - HYPERSENSITIVITY [None]
